FAERS Safety Report 13982382 (Version 11)
Quarter: 2018Q1

REPORT INFORMATION
  Report Type: Report from Study
  Country: None (occurrence: IL)
  Receive Date: 20170918
  Receipt Date: 20180126
  Transmission Date: 20180508
  Serious: Yes (Death, Life-Threatening, Hospitalization, Other)
  Sender: FDA-Public Use
  Company Number: IL-ABBVIE-17K-082-2104857-00

PATIENT
  Age: 75 Year
  Sex: Male

DRUGS (1)
  1. DUODOPA [Suspect]
     Active Substance: CARBIDOPA\LEVODOPA
     Indication: PARKINSON^S DISEASE
     Route: 050
     Dates: start: 20161128

REACTIONS (17)
  - Intentional medical device removal by patient [Unknown]
  - Device deployment issue [Unknown]
  - Pneumonia [Recovered/Resolved]
  - Sepsis [Not Recovered/Not Resolved]
  - Bacterial sepsis [Fatal]
  - Death [Fatal]
  - Decubitus ulcer [Unknown]
  - Mental status changes [Not Recovered/Not Resolved]
  - Dysphagia [Not Recovered/Not Resolved]
  - General physical health deterioration [Unknown]
  - Depression [Not Recovered/Not Resolved]
  - Decubitus ulcer [Fatal]
  - Hip fracture [Not Recovered/Not Resolved]
  - Dehydration [Not Recovered/Not Resolved]
  - Decubitus ulcer [Not Recovered/Not Resolved]
  - Infected skin ulcer [Not Recovered/Not Resolved]
  - Fall [Not Recovered/Not Resolved]

NARRATIVE: CASE EVENT DATE: 201709
